FAERS Safety Report 9269745 (Version 3)
Quarter: 2013Q2

REPORT INFORMATION
  Report Type: Spontaneous
  Country: GR (occurrence: GR)
  Receive Date: 20130503
  Receipt Date: 20130604
  Transmission Date: 20140414
  Serious: Yes (Other)
  Sender: FDA-Public Use
  Company Number: GR-GENZYME-CERZ-1002931

PATIENT
  Sex: Female
  Weight: 70 kg

DRUGS (1)
  1. CEREZYME [Suspect]
     Indication: GAUCHER^S DISEASE
     Dosage: 50 U/KG, Q3W
     Route: 042
     Dates: start: 20020604, end: 20130416

REACTIONS (5)
  - Drug ineffective [Unknown]
  - Platelet count decreased [Unknown]
  - Chitotriosidase increased [Unknown]
  - Splenomegaly [Unknown]
  - Weight increased [Unknown]
